FAERS Safety Report 15721376 (Version 1)
Quarter: 2018Q4

REPORT INFORMATION
  Report Type: Spontaneous
  Country: FR (occurrence: FR)
  Receive Date: 20181214
  Receipt Date: 20181214
  Transmission Date: 20190205
  Serious: Yes (Hospitalization, Other)
  Sender: FDA-Public Use
  Company Number: FR-BRISTOL-MYERS SQUIBB COMPANY-BMS-2018-115920

PATIENT
  Age: 45 Year
  Sex: Female
  Weight: 51 kg

DRUGS (2)
  1. OPDIVO [Suspect]
     Active Substance: NIVOLUMAB
     Indication: METASTATIC MALIGNANT MELANOMA
     Dosage: 1 DF, Q3WK
     Route: 041
     Dates: start: 20180117, end: 20180213
  2. YERVOY [Suspect]
     Active Substance: IPILIMUMAB
     Indication: METASTATIC MALIGNANT MELANOMA
     Dosage: 1 DF, Q3WK
     Route: 041
     Dates: start: 20180117, end: 20180213

REACTIONS (5)
  - Fulminant type 1 diabetes mellitus [Recovering/Resolving]
  - Hepatocellular injury [Recovered/Resolved]
  - Rash [Recovering/Resolving]
  - Meningitis aseptic [Recovered/Resolved]
  - Lymphocytic hypophysitis [Recovering/Resolving]

NARRATIVE: CASE EVENT DATE: 20180127
